FAERS Safety Report 22525802 (Version 1)
Quarter: 2023Q2

REPORT INFORMATION
  Report Type: Spontaneous
  Country: ES (occurrence: ES)
  Receive Date: 20230606
  Receipt Date: 20230606
  Transmission Date: 20230721
  Serious: Yes (Life-Threatening, Hospitalization)
  Sender: FDA-Public Use
  Company Number: None

PATIENT
  Age: 66 Year
  Sex: Female
  Weight: 48 kg

DRUGS (4)
  1. VENETOCLAX [Suspect]
     Active Substance: VENETOCLAX
     Indication: Acute myeloid leukaemia
     Dosage: 200 MG DAILY FOR 15 DAYS (STOPPED DUE TO DIARRHOEA)
     Route: 048
     Dates: start: 20230403, end: 20230418
  2. VENETOCLAX [Suspect]
     Active Substance: VENETOCLAX
     Indication: Acute myeloid leukaemia
     Dosage: 14 TABLETS
     Route: 048
  3. AZACITIDINE [Suspect]
     Active Substance: AZACITIDINE
     Indication: Acute myeloid leukaemia
     Dosage: FIRST CYCLE AZACITIDINE IN MONOTHERAPY ?(8198A)
     Route: 058
     Dates: start: 20230304, end: 20230308
  4. AZACITIDINE [Suspect]
     Active Substance: AZACITIDINE
     Indication: Acute myeloid leukaemia
     Dosage: 2ND CYCLE AZACITIDINE VENETOCLAX ON 03/APR/23
     Route: 058
     Dates: start: 20230403, end: 20230413

REACTIONS (2)
  - Septic shock [Recovered/Resolved]
  - Neutropenic colitis [Recovering/Resolving]

NARRATIVE: CASE EVENT DATE: 20230429
